FAERS Safety Report 4477239-2 (Version None)
Quarter: 2004Q4

REPORT INFORMATION
  Report Type: 
  Country: None (occurrence: None)
  Receive Date: 20041018
  Receipt Date: 20041008
  Transmission Date: 20050328
  Serious: Yes (Other)
  Sender: FDA-Public Use
  Company Number: US-MERCK-0410USA01457

PATIENT
  Sex: Female

DRUGS (4)
  1. NORVASC [Concomitant]
     Route: 065
  2. LEVOXYL [Concomitant]
     Route: 065
  3. PREDNISONE [Concomitant]
     Route: 065
  4. VIOXX [Suspect]
     Indication: PAIN
     Route: 048

REACTIONS (1)
  - SPLENIC INFARCTION [None]
